FAERS Safety Report 7437910-7 (Version None)
Quarter: 2011Q2

REPORT INFORMATION
  Report Type: 
  Country: None (occurrence: None)
  Receive Date: 20110426
  Receipt Date: 20110418
  Transmission Date: 20111010
  Serious: Yes (Other)
  Sender: FDA-Public Use
  Company Number: B0715087A

PATIENT
  Age: 31 Year
  Sex: Female

DRUGS (2)
  1. DULOXETINE [Concomitant]
  2. LAMOTRIGINE [Suspect]
     Indication: MAJOR DEPRESSION
     Dosage: 50MG PER DAY
     Route: 065
     Dates: start: 20100601

REACTIONS (5)
  - HYPOMANIA [None]
  - DISTRACTIBILITY [None]
  - PSYCHOMOTOR HYPERACTIVITY [None]
  - LOGORRHOEA [None]
  - INJURY [None]
